FAERS Safety Report 8499383-5 (Version None)
Quarter: 2012Q2

REPORT INFORMATION
  Report Type: 
  Country: None (occurrence: None)
  Receive Date: 20120613
  Receipt Date: 20120601
  Transmission Date: 20120825
  Serious: Yes (Hospitalization)
  Sender: FDA-Public Use
  Company Number: 2012PROUSA01464

PATIENT
  Age: 80 Year
  Sex: Male
  Weight: 93.9 kg

DRUGS (8)
  1. TYLENOL (CAPLET) [Concomitant]
  2. PROVENGE [Suspect]
  3. CASODEX [Concomitant]
  4. PROVENGE [Suspect]
     Indication: PROSTATE CANCER METASTATIC
     Dosage: 250 ML, SINGLE, INTRAVENOUS, 250 ML, SINGLE, INTRAVENOUS, 250 ML, SINGLE, INTRAVENOUS
     Route: 042
     Dates: start: 20120510, end: 20120510
  5. PROVENGE [Suspect]
     Indication: PROSTATE CANCER METASTATIC
     Dosage: 250 ML, SINGLE, INTRAVENOUS, 250 ML, SINGLE, INTRAVENOUS, 250 ML, SINGLE, INTRAVENOUS
     Route: 042
     Dates: start: 20120430, end: 20120430
  6. PROVENGE [Suspect]
     Indication: PROSTATE CANCER METASTATIC
     Dosage: 250 ML, SINGLE, INTRAVENOUS, 250 ML, SINGLE, INTRAVENOUS, 250 ML, SINGLE, INTRAVENOUS
     Route: 042
     Dates: start: 20120524, end: 20120524
  7. CARBIDOPA-LEVODOPA-B (CARBIDOPA, LEVODOPA) [Concomitant]
  8. PROVENGE [Suspect]

REACTIONS (7)
  - HYPOTENSION [None]
  - TACHYCARDIA [None]
  - HAEMOGLOBIN DECREASED [None]
  - INFUSION RELATED REACTION [None]
  - PYREXIA [None]
  - PLATELET COUNT DECREASED [None]
  - CHILLS [None]
